FAERS Safety Report 9629680 (Version 1)
Quarter: 2013Q4

REPORT INFORMATION
  Report Type: Spontaneous
  Country: US (occurrence: US)
  Receive Date: 20131017
  Receipt Date: 20131017
  Transmission Date: 20140711
  Serious: No
  Sender: FDA-Public Use
  Company Number: US-BAYER-2013-125969

PATIENT
  Age: 85 Year
  Sex: Female
  Weight: 66 kg

DRUGS (6)
  1. ALEVE CAPLET [Suspect]
     Indication: ARTHRITIS
     Dosage: 2 DF, UNK
     Route: 048
     Dates: start: 2006
  2. ALEVE CAPLET [Suspect]
     Indication: ARTHRITIS
     Dosage: 4 DF, SEVERAL MONTHS
     Dates: start: 2008
  3. PRAVASTATIN [Concomitant]
  4. CENTRUM [MINERALS NOS,VITAMINS NOS] [Concomitant]
  5. VITAMINS [Concomitant]
  6. BAYER ASPIRIN REGIMEN REGULAR 325 MG STRENGTH [Concomitant]

REACTIONS (2)
  - Extra dose administered [None]
  - Incorrect drug administration duration [Not Recovered/Not Resolved]
